FAERS Safety Report 12590634 (Version 3)
Quarter: 2016Q4

REPORT INFORMATION
  Report Type: Spontaneous
  Country: US (occurrence: US)
  Receive Date: 20160726
  Receipt Date: 20161026
  Transmission Date: 20170207
  Serious: Yes (Hospitalization, Other)
  Sender: FDA-Public Use
  Company Number: US-009507513-1607USA008974

PATIENT
  Age: 69 Year
  Sex: Male
  Weight: 72.48 kg

DRUGS (3)
  1. DECADRON [Suspect]
     Active Substance: DEXAMETHASONE
     Dosage: 4Q6H, LATER TAPE TO OFF
     Dates: start: 2016
  2. IRON (UNSPECIFIED) [Concomitant]
     Active Substance: IRON
  3. PALBOCICLIB [Suspect]
     Active Substance: PALBOCICLIB
     Indication: SQUAMOUS CELL CARCINOMA OF LUNG
     Dosage: 125MG QD ON DAYS 1-21
     Route: 048
     Dates: start: 20151215

REACTIONS (1)
  - Seizure [Recovering/Resolving]

NARRATIVE: CASE EVENT DATE: 2016
